FAERS Safety Report 7078866-9 (Version None)
Quarter: 2010Q4

REPORT INFORMATION
  Report Type: 
  Country: None (occurrence: None)
  Receive Date: 20101102
  Receipt Date: 20101021
  Transmission Date: 20110411
  Serious: Yes (Death)
  Sender: FDA-Public Use
  Company Number: JP-AMGEN-KDC429485

PATIENT

DRUGS (7)
  1. PANITUMUMAB [Suspect]
     Dosage: 6 MG/KG, Q2WK
     Route: 041
     Dates: start: 20100625, end: 20100625
  2. PAVINAL INJECTION [Concomitant]
     Dosage: UNK UNK, UNK
     Route: 042
  3. PAVINAL INJECTION [Concomitant]
     Route: 042
  4. DECADRON [Concomitant]
     Route: 042
  5. OXINORM [Concomitant]
     Route: 048
  6. PARIET [Concomitant]
     Route: 048
  7. CORTICOSTEROIDS [Concomitant]
     Indication: PROPHYLAXIS
     Route: 065

REACTIONS (4)
  - ACUTE PRERENAL FAILURE [None]
  - COLORECTAL CANCER [None]
  - DRUG TOXICITY [None]
  - RENAL FAILURE [None]
